FAERS Safety Report 9063438 (Version 1)
Quarter: 2013Q1

REPORT INFORMATION
  Report Type: Spontaneous
  Country: FR (occurrence: FR)
  Receive Date: 20130213
  Receipt Date: 20130213
  Transmission Date: 20140127
  Serious: Yes (Hospitalization)
  Sender: FDA-Public Use
  Company Number: PHHY2013FR013493

PATIENT
  Age: 80 None
  Sex: Female

DRUGS (4)
  1. AMOXICILLIN+CLAVULANATE [Suspect]
     Indication: URINARY TRACT INFECTION
     Dosage: 1 G, UNK
     Dates: start: 20120611, end: 20120613
  2. LACTEOL [Concomitant]
     Dosage: 340 MG, PER DAY
     Route: 048
     Dates: start: 20120611, end: 20120615
  3. CALCIPARINE [Concomitant]
     Dosage: 0.8 ML, ((0.4 ML, 2 IN 1 DAY)
     Route: 048
     Dates: start: 20120530
  4. KARDEGIC [Concomitant]
     Dosage: 160 MG, UNK
     Route: 048
     Dates: start: 20120604

REACTIONS (5)
  - Mucosal erosion [Recovering/Resolving]
  - Skin haemorrhage [Recovering/Resolving]
  - Cheilitis [Recovering/Resolving]
  - Pyrexia [Recovered/Resolved with Sequelae]
  - Hypotension [Recovered/Resolved with Sequelae]
